FAERS Safety Report 7594264-3 (Version None)
Quarter: 2011Q3

REPORT INFORMATION
  Report Type: 
  Country: None (occurrence: None)
  Receive Date: 20110706
  Receipt Date: 20110706
  Transmission Date: 20111222
  Serious: Yes (Death, Life-Threatening, Hospitalization, Disabling, Congenital Anomaly, Other)
  Sender: FDA-Public Use
  Company Number: None

PATIENT
  Age: 23 Year
  Sex: Male
  Weight: 68.038 kg

DRUGS (1)
  1. PROPECIA [Suspect]
     Indication: ALOPECIA
     Dosage: 1MG
     Route: 048
     Dates: start: 20070615, end: 20101012

REACTIONS (6)
  - COGNITIVE DISORDER [None]
  - SEXUAL DYSFUNCTION [None]
  - PANIC ATTACK [None]
  - ANXIETY [None]
  - DEPRESSION [None]
  - LOSS OF EMPLOYMENT [None]
